FAERS Safety Report 5609605-3 (Version None)
Quarter: 2008Q1

REPORT INFORMATION
  Report Type: 
  Country: None (occurrence: None)
  Receive Date: 20080131
  Receipt Date: 20080125
  Transmission Date: 20080703
  Serious: Yes (Other)
  Sender: FDA-Public Use
  Company Number: A0705473A

PATIENT
  Age: 65 Year
  Sex: Female

DRUGS (1)
  1. COREG CR [Suspect]
     Indication: CARDIAC DISORDER
     Dosage: 20MG PER DAY
     Route: 048
     Dates: start: 20070701, end: 20071116

REACTIONS (4)
  - FATIGUE [None]
  - LOSS OF CONSCIOUSNESS [None]
  - MEMORY IMPAIRMENT [None]
  - POLYURIA [None]
